FAERS Safety Report 21216687 (Version 3)
Quarter: 2022Q3

REPORT INFORMATION
  Report Type: Spontaneous
  Country: US (occurrence: US)
  Receive Date: 20220816
  Receipt Date: 20220915
  Transmission Date: 20221027
  Serious: Yes (Life-Threatening)
  Sender: FDA-Public Use
  Company Number: US-009507513-2208USA005871

PATIENT
  Sex: Female

DRUGS (6)
  1. JANUVIA [Suspect]
     Active Substance: SITAGLIPTIN PHOSPHATE
     Indication: Diabetes mellitus
     Dosage: 50 MILLIGRAM, QD
     Route: 048
     Dates: start: 202203, end: 202205
  2. GLIPIZIDE [Concomitant]
     Active Substance: GLIPIZIDE
     Dosage: 10 MILLIGRAM
  3. AMLODIPINE [Concomitant]
     Active Substance: AMLODIPINE BESYLATE
     Dosage: UNK
  4. LOSARTAN [Concomitant]
     Active Substance: LOSARTAN
     Dosage: UNK
  5. PIOGLITAZONE [Concomitant]
     Active Substance: PIOGLITAZONE
     Dosage: UNK
  6. PRAVASTATIN [Concomitant]
     Active Substance: PRAVASTATIN
     Dosage: UNK

REACTIONS (9)
  - Peripheral swelling [Unknown]
  - Myalgia [Unknown]
  - Discomfort [Unknown]
  - Visual impairment [Recovered/Resolved]
  - Photopsia [Recovered/Resolved]
  - Glycosylated haemoglobin increased [Unknown]
  - General physical condition abnormal [Unknown]
  - Adverse drug reaction [Unknown]
  - Tendon pain [Unknown]

NARRATIVE: CASE EVENT DATE: 20220101
